FAERS Safety Report 24388249 (Version 3)
Quarter: 2025Q1

REPORT INFORMATION
  Report Type: Spontaneous
  Country: US (occurrence: US)
  Receive Date: 20241002
  Receipt Date: 20250107
  Transmission Date: 20250409
  Serious: No
  Sender: MYLAN
  Company Number: US-MYLANLABS-2024M1076725

PATIENT
  Sex: Female
  Weight: 63.5 kg

DRUGS (3)
  1. TYRVAYA [Suspect]
     Active Substance: VARENICLINE TARTRATE
     Indication: Dry eye
     Dosage: 0.03 MILLIGRAM, QD (ONE SPRAY TO EACH NOSTRIL ONCE DAILY)
     Route: 045
     Dates: start: 202405
  2. TYRVAYA [Suspect]
     Active Substance: VARENICLINE TARTRATE
     Dosage: 0.03 MILLIGRAM, QD (ONE SPRAY TO EACH NOSTRIL ONCE DAILY)
     Route: 045
     Dates: start: 202405
  3. TYRVAYA [Suspect]
     Active Substance: VARENICLINE TARTRATE
     Route: 045

REACTIONS (3)
  - Off label use [Unknown]
  - Product delivery mechanism issue [Unknown]
  - Device leakage [Unknown]
